FAERS Safety Report 22377374 (Version 1)
Quarter: 2023Q2

REPORT INFORMATION
  Report Type: Other
  Country: PH (occurrence: None)
  Receive Date: 20230529
  Receipt Date: 20230529
  Transmission Date: 20230721
  Serious: Yes (Hospitalization)
  Sender: FDA-Public Use
  Company Number: PH-ROCHE-3315837

PATIENT
  Age: 70 Year
  Sex: Male
  Weight: 65 kg

DRUGS (3)
  1. TECENTRIQ [Suspect]
     Active Substance: ATEZOLIZUMAB
     Indication: Hepatocellular carcinoma
     Dosage: TECENTRIQ 1200MG X 1 VIAL ;ONGOING: YES
     Route: 042
  2. AVASTIN [Suspect]
     Active Substance: BEVACIZUMAB
     Indication: Hepatocellular carcinoma
     Dosage: AVASTIN 400MG X 2 VIALS ;ONGOING: YES
     Route: 042
  3. AVASTIN [Suspect]
     Active Substance: BEVACIZUMAB
     Dosage: AVASTIN 100MG X 2 VIALS ;ONGOING: YES
     Route: 042

REACTIONS (2)
  - Platelet count decreased [Recovering/Resolving]
  - Blood creatinine increased [Unknown]
